FAERS Safety Report 12972334 (Version 1)
Quarter: 2016Q4

REPORT INFORMATION
  Report Type: Spontaneous
  Country: IQ (occurrence: IQ)
  Receive Date: 20161124
  Receipt Date: 20161124
  Transmission Date: 20170207
  Serious: No
  Sender: FDA-Public Use
  Company Number: IQ-KYOWAKIRIN-2016BKK002607

PATIENT

DRUGS (1)
  1. GRANISETRON [Suspect]
     Active Substance: GRANISETRON
     Indication: PROPHYLAXIS OF NAUSEA AND VOMITING
     Dosage: ONE PATCH FOR EACH CYCLE
     Route: 062
     Dates: end: 2016

REACTIONS (3)
  - Nausea [Unknown]
  - Product adhesion issue [Unknown]
  - Vomiting [Unknown]

NARRATIVE: CASE EVENT DATE: 2016
